FAERS Safety Report 8623258-1 (Version None)
Quarter: 2012Q3

REPORT INFORMATION
  Report Type: 
  Country: None (occurrence: None)
  Receive Date: 20120827
  Receipt Date: 20120816
  Transmission Date: 20120928
  Serious: Yes (Hospitalization)
  Sender: FDA-Public Use
  Company Number: US-BAYER-2012-026128

PATIENT
  Age: 18 Year
  Sex: Female
  Weight: 107.3 kg

DRUGS (3)
  1. CONCERTA [Concomitant]
     Dosage: 54 MG, TAKE ONE DAILY EACH MORNING
     Dates: start: 20090808, end: 20100111
  2. SINGULAIR [Concomitant]
     Indication: ASTHMA
     Dosage: UNK
     Dates: start: 19930101
  3. YAZ [Suspect]
     Dosage: UNK
     Dates: start: 20091012

REACTIONS (3)
  - PULMONARY EMBOLISM [None]
  - PAIN [None]
  - INJURY [None]
